FAERS Safety Report 8979953 (Version 1)
Quarter: 2012Q4

REPORT INFORMATION
  Report Type: 
  Country: BR (occurrence: BR)
  Receive Date: 20121221
  Receipt Date: 20121221
  Transmission Date: 20130627
  Serious: Yes (Other)
  Sender: FDA-Public Use
  Company Number: PHHY2012BR117530

PATIENT
  Sex: Female

DRUGS (9)
  1. LUCENTIS [Suspect]
     Indication: MACULAR DEGENERATION
     Dosage: 10 mg/ml, UNK
     Dates: start: 201201
  2. LUCENTIS [Suspect]
     Dosage: 10 mg/ml, UNK
     Dates: start: 201203
  3. LUCENTIS [Suspect]
     Dosage: 10 mg/ml, UNK
  4. DIOVAN HCT [Suspect]
     Indication: HYPERTENSION
     Dosage: 1 DF, UNK
     Route: 048
  5. CITALOPRAM [Concomitant]
     Indication: DEPRESSION
     Dosage: 20 mg, UNK
     Route: 048
  6. LEXOTAN [Concomitant]
     Dosage: 3 mg, QD
     Route: 048
  7. COMBIVENT [Concomitant]
     Indication: BRONCHITIS
     Dosage: UNK UKN, UNK
  8. SERETIDE [Concomitant]
     Indication: BRONCHITIS
     Dosage: UNK UKN, UNK
  9. ALVESCO [Concomitant]
     Indication: BRONCHITIS

REACTIONS (2)
  - Retinal degeneration [Not Recovered/Not Resolved]
  - Glucose tolerance impaired [Recovered/Resolved]
